FAERS Safety Report 6060532-X (Version None)
Quarter: 2009Q1

REPORT INFORMATION
  Report Type: 
  Country: None (occurrence: None)
  Receive Date: 20090202
  Receipt Date: 20090120
  Transmission Date: 20090719
  Serious: Yes (Death, Other)
  Sender: FDA-Public Use
  Company Number: GB-RANBAXY-2009RR-21103

PATIENT

DRUGS (1)
  1. METFORMIN HCL [Suspect]
     Indication: GESTATIONAL DIABETES
     Dosage: 500 MG, BID
     Route: 048
     Dates: start: 20080917, end: 20081113

REACTIONS (1)
  - INTRA-UTERINE DEATH [None]
